FAERS Safety Report 5164773-5 (Version None)
Quarter: 2006Q4

REPORT INFORMATION
  Report Type: 
  Country: None (occurrence: None)
  Receive Date: 20061205
  Receipt Date: 20061204
  Transmission Date: 20070319
  Serious: Yes (Life-Threatening, Hospitalization)
  Sender: FDA-Public Use
  Company Number: DE-GLAXOSMITHKLINE-D0051669A

PATIENT
  Age: 32 Year
  Sex: Female

DRUGS (1)
  1. IMIGRAN S.C [Suspect]
     Indication: MIGRAINE
     Route: 058
     Dates: start: 20061027, end: 20061027

REACTIONS (5)
  - DIZZINESS [None]
  - FEELING ABNORMAL [None]
  - HYPERTENSION [None]
  - RESTLESSNESS [None]
  - SENSORY DISTURBANCE [None]
